FAERS Safety Report 8465866-7 (Version None)
Quarter: 2012Q2

REPORT INFORMATION
  Report Type: 
  Country: None (occurrence: None)
  Receive Date: 20120626
  Receipt Date: 20120619
  Transmission Date: 20120825
  Serious: Yes (Other)
  Sender: FDA-Public Use
  Company Number: VE-PFIZER INC-2012125936

PATIENT
  Age: 57 Year
  Sex: Female

DRUGS (1)
  1. LYRICA [Suspect]
     Indication: HERNIA
     Dosage: 150 MG, 1X/DAY
     Route: 048
     Dates: start: 20100101

REACTIONS (1)
  - OSTEOARTHRITIS [None]
